FAERS Safety Report 10528452 (Version 1)
Quarter: 2014Q4

REPORT INFORMATION
  Report Type: Spontaneous
  Country: US (occurrence: US)
  Receive Date: 20141020
  Receipt Date: 20141020
  Transmission Date: 20150528
  Serious: Yes (Other)
  Sender: FDA-Public Use
  Company Number: US-PFIZER INC-2014286191

PATIENT
  Age: 21 Year
  Sex: Female

DRUGS (1)
  1. CHANTIX [Suspect]
     Active Substance: VARENICLINE TARTRATE
     Dosage: UNK

REACTIONS (6)
  - Aggression [Unknown]
  - Crying [Unknown]
  - Screaming [Unknown]
  - Impulse-control disorder [Unknown]
  - Suicidal behaviour [Unknown]
  - Homicidal ideation [Unknown]
